FAERS Safety Report 19215421 (Version 3)
Quarter: 2023Q4

REPORT INFORMATION
  Report Type: Spontaneous
  Country: US (occurrence: US)
  Receive Date: 20210504
  Receipt Date: 20231102
  Transmission Date: 20240109
  Serious: Yes (Other)
  Sender: FDA-Public Use
  Company Number: US-GILEAD-2021-0527871

PATIENT
  Age: 69 Year
  Sex: Female
  Weight: 86.18 kg

DRUGS (44)
  1. TRUVADA [Suspect]
     Active Substance: EMTRICITABINE\TENOFOVIR DISOPROXIL FUMARATE
     Indication: HIV infection
     Dosage: UNK
     Route: 048
     Dates: start: 2008
  2. TRUVADA [Suspect]
     Active Substance: EMTRICITABINE\TENOFOVIR DISOPROXIL FUMARATE
     Dosage: UNK
     Route: 048
     Dates: start: 200807, end: 20180212
  3. TRUVADA [Suspect]
     Active Substance: EMTRICITABINE\TENOFOVIR DISOPROXIL FUMARATE
     Dosage: UNK
     Route: 048
     Dates: start: 200807, end: 201804
  4. VIREAD [Suspect]
     Active Substance: TENOFOVIR DISOPROXIL FUMARATE
     Indication: HIV infection
     Dosage: UNK
     Route: 065
     Dates: start: 20021014, end: 2008
  5. VIREAD [Suspect]
     Active Substance: TENOFOVIR DISOPROXIL FUMARATE
     Dosage: UNK
     Route: 065
     Dates: start: 20021014, end: 200806
  6. DESCOVY [Concomitant]
     Active Substance: EMTRICITABINE\TENOFOVIR ALAFENAMIDE FUMARATE
  7. AZTREONAM LYSINE [Concomitant]
     Active Substance: AZTREONAM LYSINE
  8. CRIXIVAN [Concomitant]
     Active Substance: INDINAVIR SULFATE
  9. EPIVIR [Concomitant]
     Active Substance: LAMIVUDINE
  10. INVIRASE [Concomitant]
     Active Substance: SAQUINAVIR MESYLATE
  11. ISENTRESS [Concomitant]
     Active Substance: RALTEGRAVIR POTASSIUM
  12. KALETRA [Concomitant]
     Active Substance: LOPINAVIR\RITONAVIR
  13. NORVIR [Concomitant]
     Active Substance: RITONAVIR
  14. SUSTIVA [Concomitant]
     Active Substance: EFAVIRENZ
  15. TIVICAY [Concomitant]
     Active Substance: DOLUTEGRAVIR SODIUM
  16. VIDEX [Concomitant]
     Active Substance: DIDANOSINE
  17. VIRACEPT [Concomitant]
     Active Substance: NELFINAVIR MESYLATE
  18. ZIAGEN [Concomitant]
     Active Substance: ABACAVIR SULFATE
  19. ZERIT [Concomitant]
     Active Substance: STAVUDINE
  20. ASPIRIN [Concomitant]
     Active Substance: ASPIRIN
  21. IRBESARTAN AND HYDROCHLOROTHIAZIDE [Concomitant]
     Active Substance: HYDROCHLOROTHIAZIDE\IRBESARTAN
  22. LIPITOR [Concomitant]
     Active Substance: ATORVASTATIN CALCIUM
  23. MAGNESIUM OXIDE [Concomitant]
     Active Substance: MAGNESIUM OXIDE
  24. POTASSIUM [Concomitant]
     Active Substance: POTASSIUM
  25. PROCARDIA [Concomitant]
     Active Substance: NIFEDIPINE
  26. AVALIDE [Concomitant]
     Active Substance: HYDROCHLOROTHIAZIDE\IRBESARTAN
  27. NIFEDIPINE [Concomitant]
     Active Substance: NIFEDIPINE
  28. CARDIZEM [Concomitant]
     Active Substance: DILTIAZEM HYDROCHLORIDE
  29. PRILOSEC [Concomitant]
     Active Substance: OMEPRAZOLE MAGNESIUM
  30. MEVACOR [Concomitant]
     Active Substance: LOVASTATIN
  31. MEDROXYPROGESTERONE ACETATE [Concomitant]
     Active Substance: MEDROXYPROGESTERONE ACETATE
  32. PREMARIN [Concomitant]
     Active Substance: ESTROGENS, CONJUGATED
  33. DAPSONE [Concomitant]
     Active Substance: DAPSONE
  34. BACTRIM [Concomitant]
     Active Substance: SULFAMETHOXAZOLE\TRIMETHOPRIM
  35. ZIDOVUDINE [Concomitant]
     Active Substance: ZIDOVUDINE
  36. INDINAVIR [Concomitant]
     Active Substance: INDINAVIR
  37. ABACAVIR [Concomitant]
     Active Substance: ABACAVIR
  38. EFAVIRENZ [Concomitant]
     Active Substance: EFAVIRENZ
  39. ADEFOVIR [Concomitant]
     Active Substance: ADEFOVIR
  40. DIDANOSINE [Concomitant]
     Active Substance: DIDANOSINE
  41. HYDROXYUREA [Concomitant]
     Active Substance: HYDROXYUREA
  42. NELFINAVIR [Concomitant]
     Active Substance: NELFINAVIR
  43. LAMIVUDINE [Concomitant]
     Active Substance: LAMIVUDINE
  44. ABT [Concomitant]

REACTIONS (5)
  - Chronic kidney disease [Not Recovered/Not Resolved]
  - Emotional distress [Not Recovered/Not Resolved]
  - Anhedonia [Not Recovered/Not Resolved]
  - Anxiety [Not Recovered/Not Resolved]
  - Pain [Not Recovered/Not Resolved]

NARRATIVE: CASE EVENT DATE: 20180114
